FAERS Safety Report 4885409-4 (Version None)
Quarter: 2005Q4

REPORT INFORMATION
  Report Type: 
  Country: None (occurrence: None)
  Receive Date: 20051220
  Receipt Date: 20041102
  Transmission Date: 20060501
  Serious: Yes (Other)
  Sender: FDA-Public Use
  Company Number: HQWYE257905NOV04

PATIENT
  Age: 62 Year
  Sex: Male
  Weight: 90.8 kg

DRUGS (3)
  1. EFFEXOR XR [Suspect]
     Indication: DEPRESSION
     Dosage: ^ON AND OFF^ SINCE 13-JAN-2004. PATIENT ^SELF WEANED^ THE MEDICATION, ORAL
     Route: 048
     Dates: start: 20040113, end: 20040101
  2. LIPITOR [Concomitant]
  3. EFFEXOR [Concomitant]

REACTIONS (5)
  - ABDOMINAL PAIN UPPER [None]
  - DRUG WITHDRAWAL SYNDROME [None]
  - FEELING ABNORMAL [None]
  - GASTROINTESTINAL DISORDER [None]
  - TINNITUS [None]
